FAERS Safety Report 17574907 (Version 2)
Quarter: 2020Q2

REPORT INFORMATION
  Report Type: Spontaneous
  Country: MX (occurrence: MX)
  Receive Date: 20200324
  Receipt Date: 20200528
  Transmission Date: 20200713
  Serious: Yes (Death)
  Sender: FDA-Public Use
  Company Number: MX-BIOGEN-2020BI00852959

PATIENT
  Age: 36 Year
  Sex: Male

DRUGS (1)
  1. TYSABRI [Suspect]
     Active Substance: NATALIZUMAB
     Indication: MULTIPLE SCLEROSIS
     Route: 042
     Dates: start: 20150330, end: 20160207

REACTIONS (2)
  - General physical health deterioration [Unknown]
  - Multiple sclerosis [Fatal]
